FAERS Safety Report 14351599 (Version 2)
Quarter: 2018Q1

REPORT INFORMATION
  Report Type: Report from Study
  Country: US (occurrence: US)
  Receive Date: 20180104
  Receipt Date: 20180209
  Transmission Date: 20180509
  Serious: Yes (Hospitalization, Other)
  Sender: FDA-Public Use
  Company Number: US-ASTRAZENECA-2017SF33224

PATIENT
  Age: 36 Year
  Sex: Male
  Weight: 102.1 kg

DRUGS (23)
  1. ASPIRIN. [Concomitant]
     Active Substance: ASPIRIN
     Indication: ADJUVANT THERAPY
     Route: 048
     Dates: start: 201601
  2. GENERIC XANAX [Concomitant]
     Active Substance: ALPRAZOLAM
     Indication: RELAXATION THERAPY
     Route: 048
     Dates: start: 201705
  3. NITROSTAT [Concomitant]
     Active Substance: NITROGLYCERIN
  4. TOUJEO [Concomitant]
     Active Substance: INSULIN GLARGINE
  5. LISINOPRIL. [Suspect]
     Active Substance: LISINOPRIL
     Indication: RENAL DISORDER
     Route: 048
     Dates: start: 20170602
  6. ZOLOFT [Concomitant]
     Active Substance: SERTRALINE HYDROCHLORIDE
  7. ALPRAZOLAM. [Concomitant]
     Active Substance: ALPRAZOLAM
     Dosage: 0.5MG UNKNOWN
     Route: 048
  8. LISINOPRIL. [Suspect]
     Active Substance: LISINOPRIL
     Indication: RENAL DISORDER
     Route: 048
     Dates: start: 1990
  9. COQ10 [Concomitant]
     Active Substance: UBIDECARENONE
     Indication: CARDIAC DISORDER
     Route: 048
  10. GENERIC XANAX [Concomitant]
     Active Substance: ALPRAZOLAM
     Indication: RELAXATION THERAPY
     Dosage: 2 MGG DAILY ENERIC
     Route: 048
     Dates: start: 201706
  11. COQ10 [Concomitant]
     Active Substance: UBIDECARENONE
     Indication: CARDIAC DISORDER
     Route: 048
  12. SERTRALINE HYDROCHLORIDE. [Concomitant]
     Active Substance: SERTRALINE HYDROCHLORIDE
     Indication: RELAXATION THERAPY
     Route: 048
     Dates: start: 2012
  13. SERTRALINE HYDROCHLORIDE. [Concomitant]
     Active Substance: SERTRALINE HYDROCHLORIDE
     Indication: STRESS
     Route: 048
     Dates: start: 2012
  14. GENERIC XANAX [Concomitant]
     Active Substance: ALPRAZOLAM
     Indication: STRESS
     Route: 048
     Dates: start: 201705
  15. FISH OIL [Concomitant]
     Active Substance: FISH OIL
  16. KLONOPIN [Concomitant]
     Active Substance: CLONAZEPAM
  17. REPATHA [Concomitant]
     Active Substance: EVOLOCUMAB
  18. BRILINTA [Suspect]
     Active Substance: TICAGRELOR
     Indication: STENT PLACEMENT
     Route: 048
     Dates: start: 201601
  19. CRESTOR [Suspect]
     Active Substance: ROSUVASTATIN CALCIUM
     Route: 048
  20. CARVEDILOL. [Concomitant]
     Active Substance: CARVEDILOL
     Indication: CARDIAC DISORDER
     Dates: start: 2014
  21. GENERIC XANAX [Concomitant]
     Active Substance: ALPRAZOLAM
     Indication: STRESS
     Dosage: 2 MGG DAILY ENERIC
     Route: 048
     Dates: start: 201706
  22. INVOKANA [Concomitant]
     Active Substance: CANAGLIFLOZIN
  23. BRILINTA [Suspect]
     Active Substance: TICAGRELOR
     Indication: MYOCARDIAL INFARCTION
     Route: 048
     Dates: start: 201601

REACTIONS (24)
  - Glycosylated haemoglobin increased [Not Recovered/Not Resolved]
  - Arterial disorder [Unknown]
  - Arteriosclerosis [Unknown]
  - Product use issue [Unknown]
  - Nervousness [Unknown]
  - Coronary artery disease [Unknown]
  - Spinal column injury [Unknown]
  - Tendon rupture [Unknown]
  - Left ventricular dilatation [Unknown]
  - Traumatic haematoma [Unknown]
  - Fall [Unknown]
  - Tendon disorder [Unknown]
  - Acute myocardial infarction [Unknown]
  - Wound [Unknown]
  - Diabetes mellitus [Unknown]
  - Drug hypersensitivity [Unknown]
  - Coronary artery stenosis [Unknown]
  - Drug intolerance [Unknown]
  - Myocardial infarction [Unknown]
  - Vascular stent stenosis [Unknown]
  - Ischaemic cardiomyopathy [Unknown]
  - Off label use [Unknown]
  - Suffocation feeling [Unknown]
  - Left ventricular dysfunction [Unknown]

NARRATIVE: CASE EVENT DATE: 1993
